FAERS Safety Report 5272414-1 (Version None)
Quarter: 2007Q1

REPORT INFORMATION
  Report Type: 
  Country: None (occurrence: None)
  Receive Date: 20070319
  Receipt Date: 20070315
  Transmission Date: 20070707
  Serious: Yes (Death, Hospitalization)
  Sender: FDA-Public Use
  Company Number: 2005-00688

PATIENT
  Age: 53 Year
  Sex: Male
  Weight: 79.4 kg

DRUGS (8)
  1. VELCADE [Suspect]
     Indication: NON-SMALL CELL LUNG CANCER STAGE IIIA
     Dosage: 1.00 MG, UNK, UNK
     Dates: start: 20041102, end: 20041203
  2. TAXOL [Suspect]
     Indication: NON-SMALL CELL LUNG CANCER STAGE IIIA
     Dosage: 100.00 MG, UNK, UNK
     Dates: start: 20041102, end: 20041207
  3. CARBOPLATIN [Suspect]
     Indication: NON-SMALL CELL LUNG CANCER STAGE IIIA
     Dosage: 246.00 MG, UNK, UNK
     Dates: start: 20041102, end: 20041207
  4. PROTONIX [Concomitant]
  5. IBUPROFEN [Concomitant]
  6. ALBUTEROL [Concomitant]
  7. ATROVENT [Concomitant]
  8. MORPHINE SULFATE (MOPRHINE SULFATE) [Concomitant]

REACTIONS (3)
  - HAEMOPTYSIS [None]
  - IMPAIRED HEALING [None]
  - PROCEDURAL COMPLICATION [None]
